FAERS Safety Report 17484169 (Version 1)
Quarter: 2020Q1

REPORT INFORMATION
  Report Type: Spontaneous
  Country: US (occurrence: US)
  Receive Date: 20200219
  Receipt Date: 20200219
  Transmission Date: 20200409
  Serious: Yes (Other)
  Sender: FDA-Public Use
  Company Number: None

PATIENT
  Age: 89 Year
  Sex: Female
  Weight: 44.5 kg

DRUGS (2)
  1. LORLATINIB 100MG [Suspect]
     Active Substance: LORLATINIB
     Indication: ADENOCARCINOMA
     Route: 048
     Dates: start: 201905, end: 20200103
  2. LORLATINIB 100MG [Suspect]
     Active Substance: LORLATINIB
     Indication: LUNG ADENOCARCINOMA
     Route: 048
     Dates: start: 201905, end: 20200103

REACTIONS (3)
  - Rash maculo-papular [None]
  - Rash pruritic [None]
  - Jaundice [None]

NARRATIVE: CASE EVENT DATE: 20200102
